FAERS Safety Report 6090482-4 (Version None)
Quarter: 2009Q1

REPORT INFORMATION
  Report Type: 
  Country: None (occurrence: None)
  Receive Date: 20090224
  Receipt Date: 20090102
  Transmission Date: 20090719
  Serious: No
  Sender: FDA-Public Use
  Company Number: US-ABBOTT-09P-163-0495788-00

PATIENT
  Sex: Male

DRUGS (8)
  1. SIMCOR [Suspect]
     Indication: HIGH DENSITY LIPOPROTEIN ABNORMAL
     Dosage: 500/20 MG AT NIGHT
     Dates: start: 20081128, end: 20081228
  2. ASPIRIN [Concomitant]
     Indication: DRUG USE FOR UNKNOWN INDICATION
     Route: 048
  3. CYMBALTA [Concomitant]
     Indication: DRUG USE FOR UNKNOWN INDICATION
     Route: 048
     Dates: end: 20081227
  4. LASIX [Concomitant]
     Indication: DRUG USE FOR UNKNOWN INDICATION
     Route: 048
  5. MULTI-VITAMIN [Concomitant]
     Indication: DRUG USE FOR UNKNOWN INDICATION
     Route: 048
  6. ASCORBIC ACID [Concomitant]
     Indication: DRUG USE FOR UNKNOWN INDICATION
     Route: 048
  7. FLOMAX [Concomitant]
     Indication: DRUG USE FOR UNKNOWN INDICATION
     Route: 048
  8. TYLENOL (CAPLET) [Concomitant]
     Indication: DRUG USE FOR UNKNOWN INDICATION
     Route: 048

REACTIONS (2)
  - EYE PAIN [None]
  - HEADACHE [None]
